FAERS Safety Report 11917467 (Version 2)
Quarter: 2016Q1

REPORT INFORMATION
  Report Type: Spontaneous
  Country: US (occurrence: US)
  Receive Date: 20160114
  Receipt Date: 20160229
  Transmission Date: 20160526
  Serious: Yes (Other)
  Sender: FDA-Public Use
  Company Number: US-PFIZER INC-2016009355

PATIENT
  Age: 71 Year
  Sex: Female
  Weight: 94.8 kg

DRUGS (2)
  1. LYRICA [Suspect]
     Active Substance: PREGABALIN
     Indication: PERIPHERAL NERVE INJURY
     Dosage: 100 MG, 2X/DAY MORNING AND NIGHT
     Route: 048
     Dates: end: 2015
  2. PROZAC [Suspect]
     Active Substance: FLUOXETINE HYDROCHLORIDE
     Indication: DEPRESSION

REACTIONS (6)
  - Condition aggravated [Unknown]
  - Insomnia [Unknown]
  - Suicidal ideation [Unknown]
  - Depression [Unknown]
  - Neuralgia [Unknown]
  - Pain [Unknown]
